FAERS Safety Report 6943500-2 (Version None)
Quarter: 2010Q3

REPORT INFORMATION
  Report Type: 
  Country: None (occurrence: None)
  Receive Date: 20100826
  Receipt Date: 20100824
  Transmission Date: 20110219
  Serious: Yes (Life-Threatening, Other)
  Sender: FDA-Public Use
  Company Number: HQWYE896619OCT04

PATIENT
  Sex: Female

DRUGS (6)
  1. PREMPRO [Suspect]
  2. CLIMARA [Suspect]
  3. PROVERA [Suspect]
  4. PREMARIN [Suspect]
  5. COMBIPATCH [Suspect]
  6. ESTRATEST [Suspect]

REACTIONS (5)
  - ARTHRALGIA [None]
  - BREAST CANCER [None]
  - CONTRALATERAL BREAST CANCER [None]
  - LYMPHADENITIS [None]
  - MYALGIA [None]
